FAERS Safety Report 10552077 (Version 2)
Quarter: 2014Q4

REPORT INFORMATION
  Report Type: Spontaneous
  Country: US (occurrence: None)
  Receive Date: 20141027
  Receipt Date: 20141118
  Transmission Date: 20150529
  Serious: Yes (Life-Threatening, Other)
  Sender: FDA-Public Use
  Company Number: LH201400338

PATIENT
  Age: 36 Year
  Sex: Female

DRUGS (2)
  1. MAKENA [Suspect]
     Active Substance: HYDROXYPROGESTERONE CAPROATE
     Indication: PREMATURE DELIVERY
     Dosage: 250 MG, ONCE WEEKLY, INTRAMUSCULAR
     Route: 030
     Dates: start: 20140918, end: 20141016
  2. PRENATAL VITAMINS /01549301/ (ASCORBIC ACID, BIOTIN, MINERALS NOS, NICOTINIC ACID, RETINOL, TOCOPHEROL, VITAMIN B NOS, VITAMIN D NOS) [Concomitant]

REACTIONS (9)
  - Chest discomfort [None]
  - Swollen tongue [None]
  - Pharyngeal oedema [None]
  - Anaphylactic reaction [None]
  - Urticaria [None]
  - Chest pain [None]
  - Rash pruritic [None]
  - Dyspnoea [None]
  - Injection site pruritus [None]

NARRATIVE: CASE EVENT DATE: 2014
